FAERS Safety Report 21619841 (Version 1)
Quarter: 2022Q4

REPORT INFORMATION
  Report Type: Spontaneous
  Country: US (occurrence: US)
  Receive Date: 20221121
  Receipt Date: 20221121
  Transmission Date: 20230113
  Serious: No
  Sender: FDA-Public Use
  Company Number: US-GLAXOSMITHKLINE-USCH2022AMR044435

PATIENT

DRUGS (3)
  1. FLUTICASONE [Suspect]
     Active Substance: FLUTICASONE
     Indication: Hypersensitivity
     Dosage: UNK
     Dates: start: 2022
  2. FLUTICASONE [Suspect]
     Active Substance: FLUTICASONE
     Indication: Infection
  3. FLUTICASONE [Suspect]
     Active Substance: FLUTICASONE
     Indication: Polyp

REACTIONS (3)
  - Nasal oedema [Unknown]
  - Secretion discharge [Unknown]
  - Off label use [Unknown]

NARRATIVE: CASE EVENT DATE: 20220101
